FAERS Safety Report 4622417-2 (Version None)
Quarter: 2005Q1

REPORT INFORMATION
  Report Type: 
  Country: None (occurrence: None)
  Receive Date: 20050325
  Receipt Date: 20050325
  Transmission Date: 20050727
  Serious: Yes (Other)
  Sender: FDA-Public Use
  Company Number: None

PATIENT
  Age: 34 Year
  Sex: Female
  Weight: 61.2356 kg

DRUGS (1)
  1. MAXZIDE [Suspect]

REACTIONS (3)
  - BLOOD PRESSURE INCREASED [None]
  - NAUSEA [None]
  - PHARMACEUTICAL PRODUCT COMPLAINT [None]
